FAERS Safety Report 8801933 (Version 2)
Quarter: 2012Q4

REPORT INFORMATION
  Report Type: 
  Country: DE (occurrence: FR)
  Receive Date: 20120921
  Receipt Date: 20121116
  Transmission Date: 20130627
  Serious: Yes (Hospitalization)
  Sender: FDA-Public Use
  Company Number: FR-FRI-1000038757

PATIENT
  Age: 83 Year
  Sex: Male

DRUGS (9)
  1. MEMANTINE [Suspect]
     Indication: DEMENTIA ALZHEIMER^S TYPE
     Dosage: 20 mg
     Route: 048
  2. TRANXENE [Suspect]
     Indication: ANXIETY
     Dosage: 15 mg
     Route: 048
     Dates: start: 20120531, end: 201206
  3. LERCAN [Suspect]
     Indication: HYPERTENSION
     Dosage: 20 mg
     Route: 048
  4. SERESTA [Suspect]
     Indication: ANXIETY
     Dosage: 150 mg
     Route: 048
     Dates: start: 201205
  5. MODOPAR [Suspect]
     Indication: PARKINSONISM
     Dosage: 3 DF
     Route: 048
  6. MODOPAR [Suspect]
     Dosage: 450 mg
     Route: 048
  7. EUPRESSYL [Suspect]
     Indication: HYPERTENSION
     Dosage: 120 mg
     Route: 048
  8. IMOVANE [Suspect]
     Indication: INSOMNIA
     Dosage: 7.5 mg
     Route: 048
  9. IXPRIM [Suspect]
     Indication: PAIN
     Dosage: 1 to 3 DF
     Dates: start: 201205, end: 201206

REACTIONS (3)
  - Balance disorder [Recovered/Resolved]
  - Fall [Recovered/Resolved]
  - Head injury [Recovered/Resolved]
